FAERS Safety Report 5037643-0 (Version None)
Quarter: 2006Q2

REPORT INFORMATION
  Report Type: 
  Country: None (occurrence: None)
  Receive Date: 20060623
  Receipt Date: 20060608
  Transmission Date: 20061013
  Serious: Yes (Death)
  Sender: FDA-Public Use
  Company Number: SPVI-2006-00030

PATIENT
  Age: 34 Year
  Sex: Male

DRUGS (1)
  1. ADDERALL 20 [Suspect]

REACTIONS (5)
  - CARDIOMEGALY [None]
  - CONGESTIVE CARDIOMYOPATHY [None]
  - DILATATION VENTRICULAR [None]
  - DRUG ABUSER [None]
  - SUDDEN DEATH [None]
